FAERS Safety Report 8495096 (Version 4)
Quarter: 2013Q1

REPORT INFORMATION
  Report Type: Spontaneous
  Country: US (occurrence: None)
  Receive Date: 20120330
  Receipt Date: 20130319
  Transmission Date: 20140127
  Serious: Yes (Hospitalization)
  Sender: FDA-Public Use
  Company Number: 2012-1374

PATIENT
  Age: 77 Year
  Sex: Male
  Weight: 87.5 kg

DRUGS (15)
  1. SOMATULINE [Suspect]
     Indication: ACROMEGALY
     Dosage: 90 MG (90 MG, 1 IN 28 D)
     Dates: start: 20110420, end: 20120313
  2. PRAVACHOL (PRAVASTATIN SODIUM) [Concomitant]
  3. ERGOCALCIFEROL (ERGOCALCIFEROL) [Concomitant]
  4. TYLENOL (TYLENOL PM) [Concomitant]
  5. ZOCOR (SIMVASTATIN) [Concomitant]
  6. LEVOTHYROXINE (LEVOTHYROXINE) [Concomitant]
  7. IMDUR (ISOSORBIDE MONONITRATE) [Concomitant]
  8. NITROQUICK (GLYCERYL TRINITRATE) [Concomitant]
  9. NORVASC (AMLODIPINE) [Concomitant]
  10. BENAZEPRIL-HYDROCHLORTHIAZIDE (BENZYLHYDROCHLORTHIAZIDE) [Concomitant]
  11. METOPROLOL SUCCINATE (METOPROLOL) [Concomitant]
  12. IBUPROFEN (IBUPROFEN) [Concomitant]
  13. NULYTELY (NULYTELY) [Concomitant]
  14. SYNTHROID (LEVOTHYROXINE SODIUM) [Concomitant]
  15. ATENOLOL (ATENOLOL) [Concomitant]

REACTIONS (23)
  - Atrial fibrillation [None]
  - Drug resistance [None]
  - Blood urea increased [None]
  - Glomerular filtration rate decreased [None]
  - Haematocrit decreased [None]
  - Haemoglobin decreased [None]
  - Red blood cell count decreased [None]
  - Aspartate aminotransferase increased [None]
  - Blood creatinine increased [None]
  - Blood alkaline phosphatase decreased [None]
  - Left ventricular hypertrophy [None]
  - Mitral valve calcification [None]
  - Aortic arteriosclerosis [None]
  - Pulmonary hypertension [None]
  - Myocardial ischaemia [None]
  - Chest pain [None]
  - High density lipoprotein decreased [None]
  - Sinus bradycardia [None]
  - Glycosylated haemoglobin increased [None]
  - Blood sodium decreased [None]
  - Coagulation time prolonged [None]
  - Activated partial thromboplastin time prolonged [None]
  - Lymphocyte percentage decreased [None]
